FAERS Safety Report 15527947 (Version 2)
Quarter: 2018Q4

REPORT INFORMATION
  Report Type: Spontaneous
  Country: US (occurrence: US)
  Receive Date: 20181020
  Receipt Date: 20181106
  Transmission Date: 20190205
  Serious: Yes (Other)
  Sender: FDA-Public Use
  Company Number: US-JNJFOC-20181008420

PATIENT
  Age: 71 Year
  Sex: Male
  Weight: 103 kg

DRUGS (4)
  1. TAMSULOSIN [Concomitant]
     Active Substance: TAMSULOSIN
  2. IMBRUVICA [Suspect]
     Active Substance: IBRUTINIB
     Indication: CHRONIC LYMPHOCYTIC LEUKAEMIA
     Route: 048
     Dates: start: 20180808, end: 20180927
  3. CARBIDOPA/LEVODOPA [Concomitant]
     Active Substance: CARBIDOPA\LEVODOPA
  4. ROPINIROLE. [Suspect]
     Active Substance: ROPINIROLE
     Indication: PARKINSON^S DISEASE
     Route: 048
     Dates: start: 20180927

REACTIONS (3)
  - Diabetic complication [Unknown]
  - VIth nerve paralysis [Not Recovered/Not Resolved]
  - Sinusitis [Unknown]

NARRATIVE: CASE EVENT DATE: 20180927
